FAERS Safety Report 14564125 (Version 2)
Quarter: 2018Q1

REPORT INFORMATION
  Report Type: Spontaneous
  Country: MM (occurrence: MM)
  Receive Date: 20180222
  Receipt Date: 20180320
  Transmission Date: 20180509
  Serious: Yes (Hospitalization)
  Sender: FDA-Public Use
  Company Number: MM-GEHC-2018CSU000709

PATIENT

DRUGS (3)
  1. OMNIPAQUE [Suspect]
     Active Substance: IOHEXOL
     Indication: PRODUCT USED FOR UNKNOWN INDICATION
     Dosage: 13 UNK, SINGLE
     Route: 048
     Dates: start: 20180211, end: 20180211
  2. OMNIPAQUE [Suspect]
     Active Substance: IOHEXOL
     Indication: OVARIAN CYST
     Dosage: 90 ML, SINGLE
     Route: 042
     Dates: start: 20180211, end: 20180211
  3. OMNIPAQUE [Suspect]
     Active Substance: IOHEXOL
     Indication: PRODUCT USED FOR UNKNOWN INDICATION
     Dosage: 5 ML, SINGLE
     Route: 054
     Dates: start: 20180211, end: 20180211

REACTIONS (5)
  - Nausea [Recovered/Resolved]
  - Vomiting [Recovered/Resolved]
  - Chills [Recovered/Resolved]
  - Blood pressure decreased [Recovered/Resolved]
  - Diarrhoea [Recovered/Resolved]

NARRATIVE: CASE EVENT DATE: 20180211
